FAERS Safety Report 9009636 (Version 2)
Quarter: 2013Q1

REPORT INFORMATION
  Report Type: Spontaneous
  Country: US (occurrence: US)
  Receive Date: 20130110
  Receipt Date: 20130219
  Transmission Date: 20140127
  Serious: Yes (Other)
  Sender: FDA-Public Use
  Company Number: US-PFIZER INC-2013004381

PATIENT
  Age: 71 Year
  Sex: Male

DRUGS (5)
  1. XALKORI [Suspect]
     Indication: NON-SMALL CELL LUNG CANCER
     Dosage: 250 MG, 2X/DAY (BID)
     Route: 048
     Dates: start: 20120720, end: 20121231
  2. ENOXAPARIN [Concomitant]
     Indication: PULMONARY EMBOLISM
     Dosage: 100 MG, 1X/DAY
     Dates: start: 20121113
  3. ENOXAPARIN [Concomitant]
     Indication: DEEP VEIN THROMBOSIS
  4. PREDNISONE [Concomitant]
     Indication: RADIATION PNEUMONITIS
     Dosage: 5 MG, 1X/DAY
     Dates: start: 20121019
  5. SYMBICORT [Concomitant]
     Indication: CHRONIC OBSTRUCTIVE PULMONARY DISEASE
     Dosage: 160/4.5 ONCE DAILY

REACTIONS (5)
  - Pulmonary thrombosis [Unknown]
  - Arthropathy [Unknown]
  - Neutropenia [Recovered/Resolved]
  - Local swelling [Recovered/Resolved]
  - White blood cell count decreased [Unknown]
